FAERS Safety Report 7872907-4 (Version None)
Quarter: 2011Q4

REPORT INFORMATION
  Report Type: 
  Country: None (occurrence: None)
  Receive Date: 20111030
  Receipt Date: 20110429
  Transmission Date: 20120403
  Serious: No
  Sender: FDA-Public Use
  Company Number: US-AMGEN-USASP2011000770

PATIENT
  Age: 69 Year
  Sex: Female

DRUGS (2)
  1. METHOTREXATE [Concomitant]
     Dates: start: 20080101
  2. ENBREL [Suspect]
     Indication: RHEUMATOID ARTHRITIS
     Dosage: 50 MG, QWK
     Dates: start: 20100916

REACTIONS (11)
  - PAIN OF SKIN [None]
  - UPPER RESPIRATORY TRACT INFECTION [None]
  - FEELING COLD [None]
  - COUGH [None]
  - FEELING HOT [None]
  - LOCAL SWELLING [None]
  - ARTHRALGIA [None]
  - PAIN IN EXTREMITY [None]
  - RHEUMATOID ARTHRITIS [None]
  - NODULE [None]
  - MUSCULOSKELETAL STIFFNESS [None]
